FAERS Safety Report 20887149 (Version 1)
Quarter: 2022Q2

REPORT INFORMATION
  Report Type: Spontaneous
  Country: US (occurrence: None)
  Receive Date: 20220528
  Receipt Date: 20220528
  Transmission Date: 20220721
  Serious: Yes (Hospitalization)
  Sender: FDA-Public Use
  Company Number: 2022A192667

PATIENT
  Sex: Male

DRUGS (2)
  1. SEROQUEL [Suspect]
     Active Substance: QUETIAPINE FUMARATE
     Indication: Anxiety
     Dosage: UNKNOWN DOSE AT NIGHT
     Route: 048
  2. SEROQUEL [Suspect]
     Active Substance: QUETIAPINE FUMARATE
     Indication: Sleep disorder
     Dosage: UNKNOWN DOSE AT NIGHT
     Route: 048

REACTIONS (7)
  - Urinary retention [Unknown]
  - Heart rate increased [Unknown]
  - Tachycardia [Unknown]
  - Incorrect dose administered [Unknown]
  - Ill-defined disorder [Unknown]
  - Counterfeit product administered [Unknown]
  - Product dose omission issue [Unknown]
